FAERS Safety Report 5368503-3 (Version None)
Quarter: 2007Q2

REPORT INFORMATION
  Report Type: 
  Country: None (occurrence: None)
  Receive Date: 20070625
  Receipt Date: 20070612
  Transmission Date: 20071010
  Serious: Yes (Hospitalization)
  Sender: FDA-Public Use
  Company Number: FR-BAYER-200710374BFR

PATIENT
  Age: 80 Year
  Sex: Male
  Weight: 80 kg

DRUGS (1)
  1. CIFLOX [Suspect]
     Indication: PROPHYLAXIS
     Dosage: TOTAL DAILY DOSE: 500 MG  UNIT DOSE: 500 MG
     Route: 048
     Dates: start: 20070520, end: 20070520

REACTIONS (3)
  - CONFUSIONAL STATE [None]
  - HEADACHE [None]
  - MENINGITIS NONINFECTIVE [None]
